FAERS Safety Report 5583039-2 (Version None)
Quarter: 2008Q1

REPORT INFORMATION
  Report Type: 
  Country: None (occurrence: None)
  Receive Date: 20080107
  Receipt Date: 20071228
  Transmission Date: 20080703
  Serious: Yes (Congenital Anomaly)
  Sender: FDA-Public Use
  Company Number: A0701518A

PATIENT
  Sex: Male
  Weight: 2 kg

DRUGS (5)
  1. TRIZIVIR [Suspect]
     Indication: DRUG USE FOR UNKNOWN INDICATION
     Dosage: 1TAB PER DAY
     Dates: start: 20071023
  2. ATRIPLA [Concomitant]
     Dates: start: 20061219, end: 20070529
  3. NEVIRAPINE [Concomitant]
     Dates: start: 20070529, end: 20071022
  4. TRUVADA [Concomitant]
     Dates: start: 20070529, end: 20071022
  5. KALETRA [Concomitant]
     Dates: start: 20071023

REACTIONS (2)
  - DRUG EXPOSURE DURING PREGNANCY [None]
  - HIP DYSPLASIA [None]
